FAERS Safety Report 6897918-7 (Version None)
Quarter: 2010Q3

REPORT INFORMATION
  Report Type: 
  Country: None (occurrence: None)
  Receive Date: 20100802
  Receipt Date: 20070816
  Transmission Date: 20110219
  Serious: Yes (Other)
  Sender: FDA-Public Use
  Company Number: US-PFIZER INC-2007068874

PATIENT
  Sex: Female
  Weight: 59 kg

DRUGS (8)
  1. LYRICA [Suspect]
     Indication: BACK DISORDER
     Dates: start: 20070814
  2. LYRICA [Suspect]
     Indication: NEURALGIA
  3. PROZAC [Concomitant]
  4. DIURETICS [Concomitant]
  5. HYDROCODONE BITARTRATE [Concomitant]
  6. ZANAFLEX [Concomitant]
  7. XANAX [Concomitant]
  8. AMBIEN [Concomitant]

REACTIONS (4)
  - OEDEMA PERIPHERAL [None]
  - SWELLING [None]
  - SWELLING FACE [None]
  - WEIGHT INCREASED [None]
